FAERS Safety Report 6195826-0 (Version None)
Quarter: 2009Q2

REPORT INFORMATION
  Report Type: 
  Country: None (occurrence: None)
  Receive Date: 20090520
  Receipt Date: 20090512
  Transmission Date: 20091009
  Serious: Yes (Other)
  Sender: FDA-Public Use
  Company Number: US-BAYER-200915106NA

PATIENT
  Age: 64 Year
  Sex: Male
  Weight: 82 kg

DRUGS (4)
  1. ULTRAVIST 300 [Suspect]
     Indication: ABDOMINAL PAIN
     Dosage: TOTAL DAILY DOSE: 100  ML  UNIT DOSE: 100 ML
     Route: 042
     Dates: start: 20090306, end: 20090306
  2. READI-CAT [Concomitant]
     Dates: start: 20090306, end: 20090306
  3. MUSCLE RELAXER [Concomitant]
  4. ARTHRITIS MEDICATION [Concomitant]

REACTIONS (6)
  - APHAGIA [None]
  - DRY THROAT [None]
  - DYSPNOEA [None]
  - PHARYNGEAL OEDEMA [None]
  - SWELLING [None]
  - URTICARIA [None]
